FAERS Safety Report 19008578 (Version 2)
Quarter: 2021Q1

REPORT INFORMATION
  Report Type: Spontaneous
  Country: US (occurrence: US)
  Receive Date: 20210315
  Receipt Date: 20210325
  Transmission Date: 20210420
  Serious: Yes (Hospitalization, Other)
  Sender: FDA-Public Use
  Company Number: US-009507513-2103USA001930

PATIENT
  Age: 40 Year
  Sex: Female

DRUGS (9)
  1. CEFOXITIN [Suspect]
     Active Substance: CEFOXITIN SODIUM
     Indication: SKIN BACTERIAL INFECTION
  2. VENLAFAXINE HYDROCHLORIDE. [Concomitant]
     Active Substance: VENLAFAXINE HYDROCHLORIDE
     Indication: DEPRESSION
     Dosage: UNK
  3. CIPROFLOXACIN. [Suspect]
     Active Substance: CIPROFLOXACIN
     Indication: MYCOBACTERIAL INFECTION
     Dosage: 750 MILLIGRAM, BID
     Dates: start: 2016, end: 2016
  4. PRIMAXIN IV [Suspect]
     Active Substance: CILASTATIN SODIUM\IMIPENEM
     Indication: SKIN BACTERIAL INFECTION
     Dosage: 500 MILLIGRAM, Q6H
     Route: 042
     Dates: start: 2016, end: 2016
  5. CIPROFLOXACIN. [Suspect]
     Active Substance: CIPROFLOXACIN
     Indication: SKIN BACTERIAL INFECTION
     Dosage: 500 MILLIGRAM, Q12H
     Route: 048
     Dates: start: 2016, end: 2016
  6. CEFOXITIN [Suspect]
     Active Substance: CEFOXITIN SODIUM
     Indication: MYCOBACTERIAL INFECTION
     Dosage: 2 GRAM, Q8H
     Dates: start: 2016, end: 2016
  7. AMIKACIN. [Suspect]
     Active Substance: AMIKACIN
     Indication: MYCOBACTERIAL INFECTION
     Dosage: 25 MILLIGRAM/KILOGRAM, TIW
     Route: 042
     Dates: start: 2016, end: 2016
  8. AMIKACIN. [Suspect]
     Active Substance: AMIKACIN
     Indication: SKIN BACTERIAL INFECTION
     Dosage: 1500 MILLIGRAM
     Route: 042
     Dates: start: 2016, end: 2016
  9. PRIMAXIN IV [Suspect]
     Active Substance: CILASTATIN SODIUM\IMIPENEM
     Indication: MYCOBACTERIAL INFECTION
     Dosage: UNK
     Route: 042
     Dates: start: 2016, end: 2016

REACTIONS (2)
  - Off label use [Unknown]
  - Drug reaction with eosinophilia and systemic symptoms [Recovered/Resolved]

NARRATIVE: CASE EVENT DATE: 2016
